FAERS Safety Report 16431317 (Version 2)
Quarter: 2019Q4

REPORT INFORMATION
  Report Type: Spontaneous
  Country: US (occurrence: IL)
  Receive Date: 20190614
  Receipt Date: 20191106
  Transmission Date: 20200122
  Serious: Yes (Other)
  Sender: FDA-Public Use
  Company Number: US-CELLTRION INC.-2019IL021655

PATIENT

DRUGS (1)
  1. INFLIXIMAB (UNKNOWN) [Suspect]
     Active Substance: INFLIXIMAB
     Indication: PSORIASIS
     Dosage: 5 MG/KG (135 MG); DURATION 0.33 YEARS

REACTIONS (4)
  - Urticaria [Unknown]
  - Product use issue [Unknown]
  - Rash pruritic [Unknown]
  - Dyspnoea [Unknown]
